FAERS Safety Report 6530779-4 (Version None)
Quarter: 2010Q1

REPORT INFORMATION
  Report Type: 
  Country: None (occurrence: None)
  Receive Date: 20100108
  Receipt Date: 20090212
  Transmission Date: 20100710
  Serious: No
  Sender: FDA-Public Use
  Company Number: A0768481A

PATIENT

DRUGS (2)
  1. LOVAZA [Suspect]
     Indication: DRUG USE FOR UNKNOWN INDICATION
     Route: 065
  2. UNKNOWN [Concomitant]

REACTIONS (1)
  - OEDEMA PERIPHERAL [None]
